FAERS Safety Report 16840114 (Version 1)
Quarter: 2019Q3

REPORT INFORMATION
  Report Type: Spontaneous
  Country: DE (occurrence: DE)
  Receive Date: 20190923
  Receipt Date: 20190923
  Transmission Date: 20191005
  Serious: Yes (Other)
  Sender: FDA-Public Use
  Company Number: DE-MYLANLABS-2019M1088260

PATIENT
  Sex: Female
  Weight: 2.96 kg

DRUGS (2)
  1. LAMOTRIGINE. [Suspect]
     Active Substance: LAMOTRIGINE
     Dosage: UNK,  (900 [MG/D ]/ AT DELIVERY 900MG/D, DOSAGE REDUCED STEP BY STEP TO 500MG/D)
     Route: 063
  2. LAMOTRIGINE. [Suspect]
     Active Substance: LAMOTRIGINE
     Indication: EPILEPSY
     Dosage: 900 MILLIGRAM PER DECILITRE, UNK
     Route: 063

REACTIONS (2)
  - Exposure via breast milk [Unknown]
  - Thrombocytosis [Recovering/Resolving]
